FAERS Safety Report 5480688-7 (Version None)
Quarter: 2007Q4

REPORT INFORMATION
  Report Type: 
  Country: None (occurrence: None)
  Receive Date: 20071003
  Receipt Date: 20070920
  Transmission Date: 20080405
  Serious: Yes (Other)
  Sender: FDA-Public Use
  Company Number: MC200700628

PATIENT
  Age: 44 Year
  Sex: Male

DRUGS (1)
  1. ANGIOMAX [Suspect]
     Indication: PERCUTANEOUS CORONARY INTERVENTION

REACTIONS (1)
  - CORONARY ARTERY DISSECTION [None]
